FAERS Safety Report 6846405-0 (Version None)
Quarter: 2010Q3

REPORT INFORMATION
  Report Type: 
  Country: None (occurrence: None)
  Receive Date: 20100715
  Receipt Date: 20071105
  Transmission Date: 20110219
  Serious: No
  Sender: FDA-Public Use
  Company Number: US-PFIZER INC-2007077901

PATIENT
  Sex: Male
  Weight: 78.9 kg

DRUGS (6)
  1. CHANTIX [Suspect]
     Indication: SMOKING CESSATION THERAPY
     Route: 048
     Dates: start: 20070901
  2. LIPITOR [Concomitant]
     Indication: BLOOD CHOLESTEROL INCREASED
  3. ZETIA [Concomitant]
     Indication: BLOOD CHOLESTEROL INCREASED
  4. ZYRTEC [Concomitant]
     Indication: HYPERSENSITIVITY
  5. ALL OTHER THERAPEUTIC PRODUCTS [Concomitant]
     Dates: start: 20070901
  6. VYTORIN [Concomitant]

REACTIONS (3)
  - DERMATITIS CONTACT [None]
  - RASH PRURITIC [None]
  - SUPERINFECTION [None]
